FAERS Safety Report 8558042-0 (Version None)
Quarter: 2012Q3

REPORT INFORMATION
  Report Type: 
  Country: None (occurrence: None)
  Receive Date: 20120801
  Receipt Date: 20120726
  Transmission Date: 20120928
  Serious: Yes (Other)
  Sender: FDA-Public Use
  Company Number: JP-009507513-1207JPN011080

PATIENT

DRUGS (8)
  1. POTASSIUM IODIDE [Concomitant]
     Indication: BASEDOW'S DISEASE
     Route: 048
  2. PEG-INTRON [Suspect]
     Indication: HEPATITIS C
     Dosage: 1.5MCG/KG/WEEK
     Route: 058
     Dates: start: 20120508
  3. EPADEL S [Concomitant]
     Indication: HYPERLIPIDAEMIA
     Route: 048
  4. REBETOL [Suspect]
     Indication: HEPATITIS C
     Route: 048
     Dates: start: 20120508
  5. FEROTYM [Concomitant]
     Indication: IRON DEFICIENCY ANAEMIA
     Route: 048
  6. CLARITIN REDITABS [Concomitant]
     Indication: PROPHYLAXIS
     Route: 048
  7. TELAVIC [Suspect]
     Indication: HEPATITIS C
     Route: 048
     Dates: start: 20120508
  8. LIVALO [Concomitant]
     Indication: HYPERLIPIDAEMIA
     Route: 048

REACTIONS (2)
  - RASH [None]
  - ANAEMIA [None]
